FAERS Safety Report 24058428 (Version 2)
Quarter: 2024Q3

REPORT INFORMATION
  Report Type: Spontaneous
  Country: EG (occurrence: EG)
  Receive Date: 20240708
  Receipt Date: 20240725
  Transmission Date: 20241016
  Serious: Yes (Hospitalization, Other)
  Sender: NOVO NORDISK
  Company Number: EG-NOVOPROD-1246621

PATIENT
  Sex: Female

DRUGS (7)
  1. NOVORAPID [Suspect]
     Active Substance: INSULIN ASPART
     Indication: Type 1 diabetes mellitus
     Dosage: 27 IU, QD (10 U,10U AND 7 U) BEFORE EACH MEAL)
     Dates: start: 2018
  2. LANTUS [Concomitant]
     Active Substance: INSULIN GLARGINE
     Indication: Type 1 diabetes mellitus
     Dosage: 18 IU, QD (NIGHT)
  3. LEVOTHYROXINE [Concomitant]
     Active Substance: LEVOTHYROXINE\LEVOTHYROXINE SODIUM
     Indication: Thyroid disorder
     Dosage: 1 AND HALF TAB (125 AND 50 CONCENTRATION
  4. MINOPHYLLINE [THEOPHYLLINE] [Concomitant]
     Indication: Asthma
     Dosage: UNK
     Route: 048
  5. ALBUTEROL SULFATE [Concomitant]
     Active Substance: ALBUTEROL SULFATE
     Indication: Asthma
     Dosage: UNK
     Route: 048
  6. GABAPENTIN [Concomitant]
     Active Substance: GABAPENTIN
     Indication: Mitral valve incompetence
     Dosage: UNK
  7. ASPIRIN [Concomitant]
     Active Substance: ASPIRIN
     Indication: Haemophilia
     Dosage: 1 TAB QD
     Route: 048

REACTIONS (3)
  - Abortion spontaneous [Unknown]
  - Cerebrovascular accident [Unknown]
  - Maternal exposure during pregnancy [Recovered/Resolved]
